FAERS Safety Report 25967527 (Version 1)
Quarter: 2025Q4

REPORT INFORMATION
  Report Type: Report from Study
  Country: PK (occurrence: PK)
  Receive Date: 20251028
  Receipt Date: 20251028
  Transmission Date: 20260118
  Serious: Yes (Other)
  Sender: ROCHE
  Company Number: PK-ROCHE-10000416312

PATIENT
  Age: 64 Year
  Sex: Female

DRUGS (2)
  1. AVASTIN [Suspect]
     Active Substance: BEVACIZUMAB
     Indication: Ovarian cancer
     Route: 042
     Dates: start: 20230428
  2. AVASTIN [Suspect]
     Active Substance: BEVACIZUMAB
     Dosage: LAST CYCLE RECEIVED ON 27-MAY-2024
     Route: 042

REACTIONS (2)
  - Ovarian cancer recurrent [Unknown]
  - Weight increased [Unknown]

NARRATIVE: CASE EVENT DATE: 20251009
